FAERS Safety Report 9837740 (Version 1)
Quarter: 2013Q4

REPORT INFORMATION
  Report Type: Spontaneous
  Country: US (occurrence: None)
  Receive Date: 20131129
  Receipt Date: 20131129
  Transmission Date: 20140711
  Serious: Yes (Hospitalization)
  Sender: FDA-Public Use
  Company Number: VAL_02772_2013

PATIENT
  Age: 27 Year
  Sex: Female

DRUGS (7)
  1. BROMOCRIPTINE [Suspect]
     Indication: PRODUCT USED FOR UNKNOWN INDICATION
     Dosage: (DF)
  2. LORAZEPAM 1 MG [Suspect]
     Indication: PRODUCT USED FOR UNKNOWN INDICATION
     Dosage: (DF)
  3. DANTROLENE [Suspect]
     Indication: PRODUCT USED FOR UNKNOWN INDICATION
     Dosage: (DF)
  4. PHYSOSTIGMINE [Suspect]
     Indication: PRODUCT USED FOR UNKNOWN INDICATION
  5. HALOPERIDOL [Concomitant]
  6. BENZOTROPINE [Concomitant]
  7. THORAZINE [Concomitant]

REACTIONS (2)
  - Drug ineffective [None]
  - Product quality issue [None]
